FAERS Safety Report 8781291 (Version 1)
Quarter: 2012Q4

REPORT INFORMATION
  Report Type: 
  Country: US (occurrence: US)
  Receive Date: 20120913
  Receipt Date: 20120913
  Transmission Date: 20130627
  Serious: Yes (Death, Hospitalization)
  Sender: FDA-Public Use
  Company Number: PHHY2012US078955

PATIENT
  Age: 13 Year
  Sex: Female

DRUGS (4)
  1. CICLOSPORIN [Suspect]
     Indication: IMMUNOSUPPRESSANT DRUG THERAPY
  2. MYCOPHENOLATE MOFETIL [Concomitant]
     Indication: IMMUNOSUPPRESSANT DRUG THERAPY
  3. GRANULOCYTE-MACROPHAGE COLONY-STIMULATING FACTOR [Concomitant]
  4. SULFAMETHOXAZOLE W/TRIMETHOPRIM [Concomitant]
     Indication: PROPHYLAXIS

REACTIONS (16)
  - Toxoplasmosis [Fatal]
  - Multi-organ failure [Fatal]
  - Cytomegalovirus infection [Fatal]
  - Respiratory failure [Unknown]
  - Mucosal inflammation [Recovered/Resolved]
  - Pulmonary haemorrhage [Unknown]
  - Chest pain [Unknown]
  - Blood alkaline phosphatase increased [Unknown]
  - Septic shock [Unknown]
  - Abdominal distension [Unknown]
  - Hyperbilirubinaemia [Unknown]
  - Pyrexia [Recovered/Resolved]
  - Acinetobacter test positive [Recovered/Resolved]
  - Transaminases increased [Unknown]
  - General physical health deterioration [None]
  - Pulmonary mass [None]
